FAERS Safety Report 8398598-4 (Version None)
Quarter: 2012Q2

REPORT INFORMATION
  Report Type: 
  Country: None (occurrence: None)
  Receive Date: 20120531
  Receipt Date: 20120522
  Transmission Date: 20120825
  Serious: Yes (Death, Hospitalization)
  Sender: FDA-Public Use
  Company Number: TW-BRISTOL-MYERS SQUIBB COMPANY-15562333

PATIENT
  Age: 59 Year
  Sex: Male
  Weight: 51 kg

DRUGS (12)
  1. PACLITAXEL [Suspect]
     Indication: GASTRIC CANCER
     Dosage: 1,8 AND 15TH EVERY 4 WEEKS CYCLE(28DAYS).LAST RECEIVED ON 18JAN2011.
     Route: 042
     Dates: start: 20110111
  2. NORVASC [Concomitant]
     Dates: start: 20101208
  3. METOCLOPRAMIDE [Concomitant]
     Indication: ABDOMINAL DISTENSION
  4. ACETAMINOPHEN [Concomitant]
     Indication: ABDOMINAL DISTENSION
  5. TRAMADOL HCL [Concomitant]
     Indication: PAIN
  6. ULTRACET [Concomitant]
     Dates: start: 20101223
  7. MEPERIDINE HCL [Concomitant]
     Indication: PAIN
  8. GASCON [Concomitant]
     Dates: start: 20110201, end: 20110215
  9. DIMETICONE [Concomitant]
     Indication: ABDOMINAL DISTENSION
  10. MEPERIDINE HCL [Concomitant]
     Dates: start: 20110211, end: 20110211
  11. PRIMPERAN TAB [Concomitant]
     Dates: start: 20101208
  12. AMLODIPINE BESYLATE [Concomitant]
     Indication: ABDOMINAL DISTENSION

REACTIONS (4)
  - RENAL FAILURE ACUTE [None]
  - ACUTE CORONARY SYNDROME [None]
  - ANGINA PECTORIS [None]
  - STRESS CARDIOMYOPATHY [None]
